FAERS Safety Report 17223425 (Version 1)
Quarter: 2020Q1

REPORT INFORMATION
  Report Type: Spontaneous
  Country: US (occurrence: US)
  Receive Date: 20200102
  Receipt Date: 20200102
  Transmission Date: 20200409
  Serious: No
  Sender: FDA-Public Use
  Company Number: US-UNITED THERAPEUTICS-UNT-2019-021728

PATIENT
  Age: 54 Year
  Sex: Female

DRUGS (1)
  1. TYVASO [Suspect]
     Active Substance: TREPROSTINIL
     Indication: PULMONARY ARTERIAL HYPERTENSION
     Dosage: 36 ?G, QID
     Dates: start: 20191212

REACTIONS (6)
  - Productive cough [Unknown]
  - Fatigue [Unknown]
  - Ascites [Unknown]
  - Diarrhoea [Unknown]
  - Bradycardia [Unknown]
  - Oedema [Unknown]

NARRATIVE: CASE EVENT DATE: 201912
